FAERS Safety Report 8384389-7 (Version None)
Quarter: 2012Q2

REPORT INFORMATION
  Report Type: 
  Country: None (occurrence: None)
  Receive Date: 20120524
  Receipt Date: 20120517
  Transmission Date: 20120825
  Serious: Yes (Hospitalization)
  Sender: FDA-Public Use
  Company Number: US-GLAXOSMITHKLINE-A0897787A

PATIENT
  Age: 63 Year
  Sex: Male

DRUGS (1)
  1. AVANDIA [Suspect]
     Indication: DIABETES MELLITUS
     Dosage: 8MG PER DAY
     Route: 048
     Dates: start: 19990801, end: 20000901

REACTIONS (11)
  - HEPATIC ENZYME INCREASED [None]
  - CORONARY ARTERY DISEASE [None]
  - FLUID OVERLOAD [None]
  - PAIN [None]
  - UNEVALUABLE EVENT [None]
  - MYOCARDIAL INFARCTION [None]
  - ATRIAL FIBRILLATION [None]
  - CEREBROVASCULAR ACCIDENT [None]
  - CARDIAC ARREST [None]
  - ECONOMIC PROBLEM [None]
  - PLEURAL EFFUSION [None]
